FAERS Safety Report 7011789-X (Version None)
Quarter: 2010Q3

REPORT INFORMATION
  Report Type: 
  Country: None (occurrence: None)
  Receive Date: 20100923
  Receipt Date: 20090806
  Transmission Date: 20110219
  Serious: No
  Sender: FDA-Public Use
  Company Number: US-WYE-H10426809

PATIENT
  Sex: Female
  Weight: 104.42 kg

DRUGS (1)
  1. PREMARIN [Suspect]
     Indication: HORMONE THERAPY
     Dosage: 0.3 MG EVERY OTHER DAY
     Route: 048
     Dates: start: 20040101

REACTIONS (2)
  - ENERGY INCREASED [None]
  - PRODUCT QUALITY ISSUE [None]
